FAERS Safety Report 20580237 (Version 1)
Quarter: 2022Q1

REPORT INFORMATION
  Report Type: Spontaneous
  Country: RU (occurrence: RU)
  Receive Date: 20220310
  Receipt Date: 20220310
  Transmission Date: 20220423
  Serious: Yes (Life-Threatening)
  Sender: FDA-Public Use
  Company Number: RU-HETERO-HET2022RU00629

PATIENT
  Age: 15 Year
  Sex: Female
  Weight: 48 kg

DRUGS (2)
  1. LEVETIRACETAM [Suspect]
     Active Substance: LEVETIRACETAM
     Indication: Epilepsy
     Dosage: 1.5 TABLETS IN THE MORNING AND 1 TABLET IN THE EVENING
     Route: 065
     Dates: start: 20220118, end: 20220125
  2. KEPPRA [Concomitant]
     Active Substance: LEVETIRACETAM
     Indication: Epilepsy
     Dosage: 1.5 TABLETS IN THE MORNING AND 1 TABLET IN THE EVENING
     Route: 065
     Dates: start: 20220125

REACTIONS (1)
  - Generalised tonic-clonic seizure [Recovered/Resolved]

NARRATIVE: CASE EVENT DATE: 20220118
